FAERS Safety Report 8573341-4 (Version None)
Quarter: 2012Q3

REPORT INFORMATION
  Report Type: 
  Country: None (occurrence: None)
  Receive Date: 20120806
  Receipt Date: 20120801
  Transmission Date: 20120928
  Serious: Yes (Other)
  Sender: FDA-Public Use
  Company Number: BR-009507513-1208BRA000870

PATIENT

DRUGS (1)
  1. SAFLUTAN [Suspect]
     Dosage: UNK, UNKNOWN
     Route: 047

REACTIONS (1)
  - BLINDNESS TRANSIENT [None]
